FAERS Safety Report 13895859 (Version 1)
Quarter: 2017Q3

REPORT INFORMATION
  Report Type: Spontaneous
  Country: US (occurrence: US)
  Receive Date: 20170820
  Receipt Date: 20170820
  Transmission Date: 20171127
  Serious: Yes (Disabling)
  Sender: FDA-Public Use
  Company Number: None

PATIENT
  Age: 74 Year
  Sex: Female
  Weight: 58.5 kg

DRUGS (9)
  1. LETROZOLE. [Concomitant]
     Active Substance: LETROZOLE
  2. OMNEPRAZOLE [Concomitant]
  3. CALCIUM WITH D [Concomitant]
     Active Substance: CALCIUM\VITAMIN D
  4. CENTRUM SILVER [Concomitant]
     Active Substance: MINERALS\VITAMINS
  5. OMEGA 3 [Concomitant]
     Active Substance: OMEGA-3 FATTY ACIDS
  6. RESTASIS [Concomitant]
     Active Substance: CYCLOSPORINE
  7. PROLIA [Suspect]
     Active Substance: DENOSUMAB
     Indication: BONE LOSS
     Dosage: EVERY 6 MONTHS
     Dates: start: 20170424
  8. LEVOTHYROXINE. [Concomitant]
     Active Substance: LEVOTHYROXINE
  9. CARAFATE [Concomitant]
     Active Substance: SUCRALFATE

REACTIONS (4)
  - Osteopenia [None]
  - Dizziness [None]
  - Dyspnoea [None]
  - Tongue ulceration [None]

NARRATIVE: CASE EVENT DATE: 20170424
